FAERS Safety Report 23743320 (Version 2)
Quarter: 2024Q3

REPORT INFORMATION
  Report Type: Report from Study
  Country: DE (occurrence: DE)
  Receive Date: 20240415
  Receipt Date: 20240916
  Transmission Date: 20241016
  Serious: No
  Sender: ROCHE
  Company Number: DE-ROCHE-3545761

PATIENT
  Age: 33 Year
  Sex: Female
  Weight: 58.0 kg

DRUGS (19)
  1. OCREVUS [Suspect]
     Active Substance: OCRELIZUMAB
     Indication: Relapsing multiple sclerosis
     Route: 042
     Dates: start: 20210111, end: 20210125
  2. OCREVUS [Suspect]
     Active Substance: OCRELIZUMAB
     Route: 042
     Dates: start: 20210802
  3. DOXEPIN [Concomitant]
     Active Substance: DOXEPIN
     Indication: Depression
     Dosage: DEFINITION OF THE INTERVAL: AS REQUIRED
     Route: 048
     Dates: start: 20210104, end: 202112
  4. COMIRNATY [Concomitant]
     Indication: COVID-19 immunisation
     Route: 030
     Dates: start: 20210611, end: 20210611
  5. COMIRNATY [Concomitant]
     Route: 030
     Dates: start: 20210428, end: 20210428
  6. DOXEPIN HYDROCHLORIDE [Concomitant]
     Active Substance: DOXEPIN HYDROCHLORIDE
     Indication: Sleep disorder
     Dosage: DEFINITION OF THE INTERVAL: AS REQUIRED
     Route: 048
  7. AGNUS CASTUS [Concomitant]
     Indication: Dysmenorrhoea
     Route: 048
     Dates: end: 202207
  8. LORATADINE [Concomitant]
     Active Substance: LORATADINE
     Indication: Prophylaxis
     Route: 048
     Dates: end: 202302
  9. MAGNESIUM [Concomitant]
     Active Substance: MAGNESIUM
     Indication: Prophylaxis
     Route: 048
     Dates: start: 202107, end: 202207
  10. PFIZER-BIONTECH COVID-19 VACCINE [Concomitant]
     Active Substance: TOZINAMERAN
     Indication: COVID-19 immunisation
     Route: 030
     Dates: start: 20211221, end: 20211221
  11. PHYTOPHANERE [Concomitant]
     Route: 048
  12. ZOPICLONE [Concomitant]
     Active Substance: ZOPICLONE
     Indication: Sleep disorder
     Dosage: DEFINITION OF THE INTERVAL: AS REQUIRED
     Route: 048
     Dates: start: 20210104, end: 202112
  13. CALCIUM [Concomitant]
     Active Substance: CALCIUM
     Indication: Prophylaxis
     Route: 048
     Dates: start: 202107, end: 202207
  14. CIMETIDIN [Concomitant]
     Indication: Premedication
     Route: 042
     Dates: start: 20210111
  15. ESTRADIOL [Concomitant]
     Active Substance: ESTRADIOL
     Dosage: DEFINITION OF THE INTERVAL: AS REQUIRED
     Route: 067
     Dates: start: 202110, end: 202302
  16. ACETAMINOPHEN [Concomitant]
     Active Substance: ACETAMINOPHEN
     Route: 048
     Dates: start: 20210125, end: 20210125
  17. IBUPROFEN [Concomitant]
     Active Substance: IBUPROFEN
     Indication: Headache
     Route: 048
     Dates: start: 20210125, end: 20210125
  18. IBUPROFEN [Concomitant]
     Active Substance: IBUPROFEN
     Route: 048
  19. IBUPROFEN [Concomitant]
     Active Substance: IBUPROFEN
     Route: 048
     Dates: start: 20210111, end: 20210111

REACTIONS (2)
  - Human papilloma virus test positive [Recovered/Resolved]
  - Upper respiratory tract infection [Recovered/Resolved]

NARRATIVE: CASE EVENT DATE: 20240301
